FAERS Safety Report 4703336-X (Version None)
Quarter: 2005Q2

REPORT INFORMATION
  Report Type: 
  Country: None (occurrence: None)
  Receive Date: 20050624
  Receipt Date: 20050509
  Transmission Date: 20051028
  Serious: No
  Sender: FDA-Public Use
  Company Number: 2005BI009452

PATIENT
  Sex: Female
  Weight: 70.3075 kg

DRUGS (1)
  1. NATALIZUMAB [Suspect]
     Dosage: 300 MG;QM;IV
     Route: 042
     Dates: start: 20050201, end: 20050201

REACTIONS (3)
  - AMNESIA [None]
  - CONFUSIONAL STATE [None]
  - HYPOAESTHESIA [None]
